FAERS Safety Report 6557067-4 (Version None)
Quarter: 2010Q1

REPORT INFORMATION
  Report Type: 
  Country: None (occurrence: None)
  Receive Date: 20100128
  Receipt Date: 20100115
  Transmission Date: 20100710
  Serious: Yes (Death)
  Sender: FDA-Public Use
  Company Number: CA-GENENTECH-297149

PATIENT
  Sex: Male

DRUGS (2)
  1. LUCENTIS [Suspect]
     Indication: DRUG USE FOR UNKNOWN INDICATION
     Dosage: 0.05 ML, 1/MONTH
     Route: 031
     Dates: start: 20091105
  2. LUCENTIS [Suspect]
     Dosage: 0.05 ML, 1/MONTH
     Route: 031
     Dates: end: 20091203

REACTIONS (1)
  - DEATH [None]
